FAERS Safety Report 16240558 (Version 1)
Quarter: 2019Q2

REPORT INFORMATION
  Report Type: Spontaneous
  Country: US (occurrence: US)
  Receive Date: 20190425
  Receipt Date: 20190425
  Transmission Date: 20190711
  Serious: No
  Sender: FDA-Public Use
  Company Number: US-EMD SERONO-9083705

PATIENT
  Sex: Female

DRUGS (1)
  1. BAVENCIO [Suspect]
     Active Substance: AVELUMAB
     Indication: BLADDER CANCER
     Dosage: 200MG/10 ML
     Route: 042
     Dates: start: 20190122

REACTIONS (1)
  - Hospice care [Unknown]
